FAERS Safety Report 7602959-8 (Version None)
Quarter: 2011Q3

REPORT INFORMATION
  Report Type: 
  Country: None (occurrence: None)
  Receive Date: 20110712
  Receipt Date: 20110407
  Transmission Date: 20111222
  Serious: No
  Sender: FDA-Public Use
  Company Number: A0921815A

PATIENT
  Age: 86 Year
  Sex: Male

DRUGS (6)
  1. JALYN [Suspect]
     Dosage: .5MG PER DAY
     Route: 048
  2. ATENOLOL [Concomitant]
  3. CLONOPIN [Concomitant]
  4. SYNTHROID [Concomitant]
  5. LIPITOR [Concomitant]
  6. EFFEXOR [Concomitant]

REACTIONS (1)
  - DRUG INEFFECTIVE [None]
